FAERS Safety Report 10017522 (Version 1)
Quarter: 2014Q1

REPORT INFORMATION
  Report Type: Spontaneous
  Country: HR (occurrence: HR)
  Receive Date: 20140318
  Receipt Date: 20140318
  Transmission Date: 20141002
  Serious: Yes (Life-Threatening, Other)
  Sender: FDA-Public Use
  Company Number: HR-TEVA-466910ISR

PATIENT
  Age: 69 Year
  Sex: Female

DRUGS (3)
  1. LUXETA [Suspect]
     Indication: DEPRESSION
     Dosage: 50 MILLIGRAM DAILY;
     Route: 048
     Dates: start: 20131207, end: 20140107
  2. ATENOLOL JADRAN TABLETE [Concomitant]
     Indication: ESSENTIAL HYPERTENSION
     Dosage: 50 MILLIGRAM DAILY;
     Route: 048
     Dates: start: 2012
  3. CONCOR [Concomitant]
     Indication: ESSENTIAL HYPERTENSION
     Dosage: 5 MILLIGRAM DAILY;
     Route: 048
     Dates: start: 2012

REACTIONS (4)
  - Restlessness [Recovering/Resolving]
  - Balance disorder [Recovering/Resolving]
  - Tremor [Recovering/Resolving]
  - Fall [Recovering/Resolving]
